FAERS Safety Report 10243452 (Version 2)
Quarter: 2014Q3

REPORT INFORMATION
  Report Type: Spontaneous
  Country: US (occurrence: None)
  Receive Date: 20140616
  Receipt Date: 20140708
  Transmission Date: 20150326
  Serious: Yes (Other)
  Sender: FDA-Public Use
  Company Number: AUR-APL-2014-06363

PATIENT
  Age: 73 Year
  Sex: Female

DRUGS (1)
  1. ZOLPIDEM TARTRATE TABLETS 10 MG (ZOLPIDEM) TABLET, 10MG [Suspect]
     Active Substance: ZOLPIDEM TARTRATE
     Indication: PRODUCT USED FOR UNKNOWN INDICATION
     Route: 048
     Dates: start: 201402

REACTIONS (5)
  - Product substitution issue [None]
  - Fall [None]
  - Amnesia [None]
  - Contusion [None]
  - Somnolence [None]

NARRATIVE: CASE EVENT DATE: 201402
